FAERS Safety Report 6056380-7 (Version None)
Quarter: 2009Q1

REPORT INFORMATION
  Report Type: 
  Country: None (occurrence: None)
  Receive Date: 20090129
  Receipt Date: 20090122
  Transmission Date: 20090719
  Serious: Yes (Hospitalization)
  Sender: FDA-Public Use
  Company Number: DE-ABBOTT-09P-062-0499052-00

PATIENT
  Sex: Female

DRUGS (2)
  1. HUMIRA [Suspect]
     Indication: CROHN'S DISEASE
     Route: 058
     Dates: start: 20080609
  2. GLUCOCORTICOIDS [Concomitant]
     Indication: CROHN'S DISEASE
     Route: 058

REACTIONS (1)
  - ANKLE FRACTURE [None]
